FAERS Safety Report 4845955-6 (Version None)
Quarter: 2005Q4

REPORT INFORMATION
  Report Type: 
  Country: None (occurrence: None)
  Receive Date: 20051129
  Receipt Date: 20051115
  Transmission Date: 20060501
  Serious: Yes (Other)
  Sender: FDA-Public Use
  Company Number: 200509483

PATIENT
  Age: 10 Year
  Sex: Male

DRUGS (30)
  1. IMMUNE GLOBULIN INTRAVENOUS (HUMAN) [Suspect]
     Indication: OPSOCLONUS MYOCLONUS
     Dosage: SEE IMAGE
     Route: 042
  2. IMMUNE GLOBULIN INTRAVENOUS (HUMAN) [Suspect]
  3. IMMUNE GLOBULIN INTRAVENOUS (HUMAN) [Suspect]
  4. IMMUNE GLOBULIN INTRAVENOUS (HUMAN) [Suspect]
  5. IMMUNE GLOBULIN INTRAVENOUS (HUMAN) [Suspect]
  6. IMMUNE GLOBULIN INTRAVENOUS (HUMAN) [Suspect]
  7. IMMUNE GLOBULIN INTRAVENOUS (HUMAN) [Suspect]
  8. IMMUNE GLOBULIN INTRAVENOUS (HUMAN) [Suspect]
  9. IMMUNE GLOBULIN INTRAVENOUS (HUMAN) [Suspect]
  10. IMMUNE GLOBULIN INTRAVENOUS (HUMAN) [Suspect]
  11. IMMUNE GLOBULIN INTRAVENOUS (HUMAN) [Suspect]
  12. IMMUNE GLOBULIN INTRAVENOUS (HUMAN) [Suspect]
  13. IMMUNE GLOBULIN INTRAVENOUS (HUMAN) [Suspect]
  14. IMMUNE GLOBULIN INTRAVENOUS (HUMAN) [Suspect]
  15. IMMUNE GLOBULIN INTRAVENOUS (HUMAN) [Suspect]
  16. IMMUNE GLOBULIN INTRAVENOUS (HUMAN) [Suspect]
  17. IMMUNE GLOBULIN INTRAVENOUS (HUMAN) [Suspect]
  18. IMMUNE GLOBULIN INTRAVENOUS (HUMAN) [Suspect]
  19. IMMUNE GLOBULIN INTRAVENOUS (HUMAN) [Suspect]
  20. IMMUNE GLOBULIN INTRAVENOUS (HUMAN) [Suspect]
  21. IMMUNE GLOBULIN INTRAVENOUS (HUMAN) [Suspect]
  22. IMMUNE GLOBULIN INTRAVENOUS (HUMAN) [Suspect]
  23. IMMUNE GLOBULIN INTRAVENOUS (HUMAN) [Suspect]
  24. IMMUNE GLOBULIN INTRAVENOUS (HUMAN) [Suspect]
  25. IMMUNE GLOBULIN INTRAVENOUS (HUMAN) [Suspect]
  26. IMMUNE GLOBULIN INTRAVENOUS (HUMAN) [Suspect]
  27. IMMUNE GLOBULIN INTRAVENOUS (HUMAN) [Suspect]
  28. IMMUNE GLOBULIN INTRAVENOUS (HUMAN) [Suspect]
  29. IMMUNE GLOBULIN INTRAVENOUS (HUMAN) [Suspect]
  30. IMMUNE GLOBULIN INTRAVENOUS (HUMAN) [Suspect]

REACTIONS (6)
  - ANTI-HBS ANTIBODY POSITIVE [None]
  - HEPATITIS B CORE ANTIGEN POSITIVE [None]
  - HEPATITIS B E ANTIGEN POSITIVE [None]
  - HEPATITIS B SURFACE ANTIGEN POSITIVE [None]
  - PLATELET COUNT INCREASED [None]
  - VIRAL HEPATITIS CARRIER [None]
